FAERS Safety Report 8228439-7 (Version None)
Quarter: 2012Q1

REPORT INFORMATION
  Report Type: 
  Country: None (occurrence: None)
  Receive Date: 20120322
  Receipt Date: 20110630
  Transmission Date: 20120608
  Serious: No
  Sender: FDA-Public Use
  Company Number: US-BRISTOL-MYERS SQUIBB COMPANY-15870918

PATIENT
  Age: 45 Year
  Sex: Female

DRUGS (1)
  1. ERBITUX [Suspect]
     Indication: ANAL CANCER
     Dosage: 90 MIN 2 HR INFUSION
     Route: 042
     Dates: start: 20110614, end: 20110614

REACTIONS (1)
  - CHILLS [None]
